FAERS Safety Report 7403984-2 (Version None)
Quarter: 2011Q2

REPORT INFORMATION
  Report Type: 
  Country: None (occurrence: None)
  Receive Date: 20110408
  Receipt Date: 20101207
  Transmission Date: 20111010
  Serious: Yes (Hospitalization, Other)
  Sender: FDA-Public Use
  Company Number: US-BAYER-201030527NA

PATIENT
  Age: 43 Year
  Sex: Female
  Weight: 76.19 kg

DRUGS (2)
  1. IBUPROFEN [Concomitant]
     Dosage: UNK UNK, PRN
  2. YASMIN [Suspect]
     Indication: ACNE
     Dosage: UNK UNK, UNK
     Route: 048
     Dates: start: 20011101, end: 20060801

REACTIONS (5)
  - PULMONARY EMBOLISM [None]
  - JOINT SWELLING [None]
  - CARDIOVASCULAR DISORDER [None]
  - THROMBOSIS [None]
  - OEDEMA PERIPHERAL [None]
